FAERS Safety Report 13210753 (Version 1)
Quarter: 2017Q1

REPORT INFORMATION
  Report Type: Spontaneous
  Country: US (occurrence: US)
  Receive Date: 20170209
  Receipt Date: 20170209
  Transmission Date: 20170428
  Serious: No
  Sender: FDA-Public Use
  Company Number: US-B.I. PHARMACEUTICALS,INC./RIDGEFIELD-2017-BI-006102

PATIENT
  Sex: Male

DRUGS (1)
  1. JENTADUETO [Suspect]
     Active Substance: LINAGLIPTIN\METFORMIN HYDROCHLORIDE
     Indication: PRODUCT USED FOR UNKNOWN INDICATION
     Dosage: NR;  ? ADMINISTRATION CORRECT? NR(NOT REPORTED) ?ACTION(S) TAKEN WITH PRODUCT: NOT REPORTED
     Route: 048

REACTIONS (2)
  - Pain in extremity [Unknown]
  - Neck pain [Unknown]
